FAERS Safety Report 8949741 (Version 2)
Quarter: 2014Q1

REPORT INFORMATION
  Report Type: Spontaneous
  Country: US (occurrence: US)
  Receive Date: 20121206
  Receipt Date: 20140321
  Transmission Date: 20141002
  Serious: No
  Sender: FDA-Public Use
  Company Number: US-B.I. PHARMACEUTICALS,INC./RIDGEFIELD-2012-BI-02447BP

PATIENT
  Age: 80 Year
  Sex: Female
  Weight: 56 kg

DRUGS (7)
  1. SPIRIVA [Suspect]
     Indication: CHRONIC OBSTRUCTIVE PULMONARY DISEASE
     Dosage: 18 MCG
     Route: 055
     Dates: start: 201209
  2. SPIRIVA [Suspect]
     Dosage: 18 MCG
     Route: 048
     Dates: start: 201308
  3. ATENOLOL [Concomitant]
     Indication: HYPERTENSION
     Route: 048
  4. ASPIRIN [Concomitant]
     Dosage: 162 MG
     Route: 048
  5. CITALOPRAM [Concomitant]
     Route: 048
  6. DOXAZOSIN [Concomitant]
     Dosage: 1 MG
     Route: 048
  7. ATORVASTATIN [Concomitant]
     Dosage: 30 MG
     Route: 048

REACTIONS (2)
  - Tremor [Not Recovered/Not Resolved]
  - Incorrect route of drug administration [Recovered/Resolved]
